FAERS Safety Report 9821822 (Version 1)
Quarter: 2014Q1

REPORT INFORMATION
  Report Type: Spontaneous
  Country: GB (occurrence: GB)
  Receive Date: 20140116
  Receipt Date: 20140116
  Transmission Date: 20141002
  Serious: Yes (Disabling, Other)
  Sender: FDA-Public Use
  Company Number: GB-PFIZER INC-2014012398

PATIENT
  Age: 57 Year
  Sex: Female
  Weight: 82.7 kg

DRUGS (2)
  1. AMLODIPINE BESILATE [Suspect]
     Indication: HYPERTENSION
     Dosage: 10 MG, UNK
     Route: 048
     Dates: start: 2009, end: 201312
  2. BENDROFLUMETHIAZIDE [Concomitant]
     Dosage: 2.5 MG, UNK
     Route: 048
     Dates: start: 2009

REACTIONS (2)
  - Gingival hyperplasia [Recovering/Resolving]
  - Tooth disorder [Unknown]
